FAERS Safety Report 13813249 (Version 1)
Quarter: 2017Q3

REPORT INFORMATION
  Report Type: Spontaneous
  Country: US (occurrence: US)
  Receive Date: 20170731
  Receipt Date: 20170731
  Transmission Date: 20171127
  Serious: No
  Sender: FDA-Public Use
  Company Number: US-ELI_LILLY_AND_COMPANY-US201707008861

PATIENT
  Sex: Female

DRUGS (1)
  1. HUMALOG [Suspect]
     Active Substance: INSULIN LISPRO
     Indication: GLUCOSE TOLERANCE IMPAIRED
     Dosage: 4 U, TID
     Route: 058

REACTIONS (4)
  - Blood glucose abnormal [Unknown]
  - Dysphonia [Unknown]
  - Visual impairment [Not Recovered/Not Resolved]
  - Accidental underdose [Not Recovered/Not Resolved]
